FAERS Safety Report 16974731 (Version 12)
Quarter: 2022Q4

REPORT INFORMATION
  Report Type: Report from Study
  Country: FR (occurrence: FR)
  Receive Date: 20191030
  Receipt Date: 20221207
  Transmission Date: 20230113
  Serious: Yes (Death, Other)
  Sender: FDA-Public Use
  Company Number: FR-ABBVIE-19K-056-2977950-00

PATIENT
  Age: 68 Year
  Sex: Male
  Weight: 111 kg

DRUGS (38)
  1. VENETOCLAX [Suspect]
     Active Substance: VENETOCLAX
     Indication: Chronic lymphocytic leukaemia
     Dosage: 20 MILLIGRAM
     Route: 048
     Dates: start: 20190428, end: 20190515
  2. VENETOCLAX [Suspect]
     Active Substance: VENETOCLAX
     Indication: Chronic lymphocytic leukaemia
     Dosage: 200 MILLIGRAM
     Route: 048
     Dates: start: 20190530, end: 20190611
  3. VENETOCLAX [Suspect]
     Active Substance: VENETOCLAX
     Indication: Chronic lymphocytic leukaemia
     Route: 048
     Dates: start: 20190516, end: 20190522
  4. VENETOCLAX [Suspect]
     Active Substance: VENETOCLAX
     Indication: Chronic lymphocytic leukaemia
     Dosage: 400 MILLIGRAM
     Route: 048
     Dates: start: 20190612, end: 20200315
  5. VENETOCLAX [Suspect]
     Active Substance: VENETOCLAX
     Indication: Chronic lymphocytic leukaemia
     Route: 048
     Dates: start: 20190523, end: 20190529
  6. VENETOCLAX [Suspect]
     Active Substance: VENETOCLAX
     Indication: Chronic lymphocytic leukaemia
     Dosage: 50 MILLIGRAM
     Route: 048
     Dates: start: 20190516, end: 20190522
  7. VENETOCLAX [Suspect]
     Active Substance: VENETOCLAX
     Indication: Chronic lymphocytic leukaemia
     Route: 048
     Dates: start: 20190530, end: 20190611
  8. VENETOCLAX [Suspect]
     Active Substance: VENETOCLAX
     Indication: Chronic lymphocytic leukaemia
     Dosage: 100 MILLIGRAM
     Route: 048
     Dates: start: 20190523, end: 20190529
  9. VENETOCLAX [Suspect]
     Active Substance: VENETOCLAX
     Indication: Chronic lymphocytic leukaemia
     Route: 048
     Dates: start: 20190612, end: 20200316
  10. OMEPRAZOLE [Concomitant]
     Active Substance: OMEPRAZOLE
     Indication: Bronchitis
     Dates: start: 20190113
  11. FASTURTEC [Concomitant]
     Active Substance: RASBURICASE
     Indication: Prophylaxis
     Dates: start: 20190428
  12. AMBISOME [Concomitant]
     Active Substance: AMPHOTERICIN B
     Indication: Mucormycosis
     Dates: start: 20190503, end: 20190510
  13. VALACYCLOVIR HYDROCHLORIDE [Concomitant]
     Active Substance: VALACYCLOVIR HYDROCHLORIDE
     Indication: Infection prophylaxis
     Dates: start: 20190430
  14. BACTRIM [Concomitant]
     Active Substance: SULFAMETHOXAZOLE\TRIMETHOPRIM
     Indication: Infection prophylaxis
     Dates: start: 20190430
  15. CYTARABINE;DEXAMETHASONE [Concomitant]
     Indication: Chronic lymphocytic leukaemia
     Dates: start: 20200317, end: 20200407
  16. PRIMPERAN [Concomitant]
     Active Substance: METOCLOPRAMIDE HYDROCHLORIDE
     Indication: Prophylaxis of nausea and vomiting
     Dates: start: 20190430
  17. LENOGRASTIM [Concomitant]
     Active Substance: LENOGRASTIM
     Indication: Neutrophil count abnormal
     Dates: start: 20190430
  18. AUGMENTIN [Concomitant]
     Active Substance: AMOXICILLIN\CLAVULANATE POTASSIUM
     Indication: Bronchitis
     Dates: start: 20191127, end: 20191204
  19. EMEND [Concomitant]
     Active Substance: APREPITANT
     Indication: Prophylaxis of nausea and vomiting
     Dates: start: 20190430, end: 20190502
  20. RITUXIMAB [Concomitant]
     Active Substance: RITUXIMAB
     Indication: Chronic lymphocytic leukaemia
     Dates: start: 20190528, end: 20191106
  21. RITUXIMAB [Concomitant]
     Active Substance: RITUXIMAB
     Indication: Chronic lymphocytic leukaemia
     Dates: start: 20190528, end: 20191106
  22. CRESEMBA [Concomitant]
     Active Substance: ISAVUCONAZONIUM SULFATE
     Indication: Mucormycosis
     Dates: start: 20190510, end: 201906
  23. EBASTINE [Concomitant]
     Active Substance: EBASTINE
     Indication: Product used for unknown indication
     Dates: start: 20190528, end: 20191106
  24. ESOMEPRAZOLE [Concomitant]
     Active Substance: ESOMEPRAZOLE
     Indication: Gastrooesophageal reflux prophylaxis
     Dates: start: 20191009
  25. ESOMEPRAZOLE [Concomitant]
     Active Substance: ESOMEPRAZOLE
     Indication: Gastrooesophageal reflux prophylaxis
     Dates: start: 20191009
  26. PREDNISONE [Concomitant]
     Active Substance: PREDNISONE
     Indication: Chronic lymphocytic leukaemia
     Dates: start: 20190528, end: 20191106
  27. ESOMEPRAZOLE [Concomitant]
     Active Substance: ESOMEPRAZOLE
     Indication: Gastrooesophageal reflux prophylaxis
     Dates: start: 20191009
  28. ACUPAN [Concomitant]
     Active Substance: NEFOPAM HYDROCHLORIDE
     Indication: Mucormycosis
     Dates: start: 20190511, end: 20190614
  29. FUROSEMIDE [Concomitant]
     Active Substance: FUROSEMIDE
     Indication: Mucormycosis
     Dates: start: 20190511, end: 2019
  30. ACETAMINOPHEN [Concomitant]
     Active Substance: ACETAMINOPHEN
     Indication: Mucormycosis
     Dates: start: 20190511
  31. LEUCOVORIN [Concomitant]
     Active Substance: LEUCOVORIN
     Indication: Mucormycosis
     Dates: start: 20190511, end: 20190614
  32. TERBUTALINE [Concomitant]
     Active Substance: TERBUTALINE
     Indication: Mucormycosis
     Dates: start: 20190511, end: 20190614
  33. Solupred [Concomitant]
     Indication: Bronchitis
     Dates: start: 20191127, end: 20191204
  34. PREDNISONE [Concomitant]
     Active Substance: PREDNISONE
     Indication: Premedication
     Dates: start: 20190528, end: 20191106
  35. OCTAGAM IMMUNE GLOBULIN (HUMAN) [Concomitant]
     Active Substance: HUMAN IMMUNOGLOBULIN G
     Indication: Hypogammaglobulinaemia
     Dates: start: 20190613, end: 20191204
  36. NOXAFIL [Concomitant]
     Active Substance: POSACONAZOLE
     Indication: Mucormycosis
     Dates: start: 20190512, end: 20190614
  37. PIPERACILLIN SODIUM\TAZOBACTAM SODIUM [Concomitant]
     Active Substance: PIPERACILLIN SODIUM\TAZOBACTAM SODIUM
     Indication: Bacterial infection
     Dates: start: 20190513, end: 20190525
  38. LOVENOX [Concomitant]
     Active Substance: ENOXAPARIN SODIUM
     Indication: Mucormycosis
     Dates: start: 20190511, end: 20190614

REACTIONS (21)
  - Death [Fatal]
  - Cataract [Not Recovered/Not Resolved]
  - Richter^s syndrome [Unknown]
  - Mucormycosis [Recovered/Resolved]
  - Pulmonary mucormycosis [Recovered/Resolved]
  - Blood lactate dehydrogenase increased [Recovered/Resolved]
  - Hypogammaglobulinaemia [Not Recovered/Not Resolved]
  - Skin lesion [Not Recovered/Not Resolved]
  - Aspergillus infection [Not Recovered/Not Resolved]
  - Bronchitis [Not Recovered/Not Resolved]
  - Escherichia infection [Recovered/Resolved]
  - Off label use [Unknown]
  - Asthenia [Recovered/Resolved]
  - Hyperphosphataemia [Not Recovered/Not Resolved]
  - Anaemia [Recovered/Resolved]
  - Tumour lysis syndrome [Recovered/Resolved]
  - Neutropenia [Recovered/Resolved]
  - Thrombocytopenia [Not Recovered/Not Resolved]
  - Diarrhoea [Not Recovered/Not Resolved]
  - Leukopenia [Recovered/Resolved]
  - Lymphopenia [Not Recovered/Not Resolved]

NARRATIVE: CASE EVENT DATE: 20190428
